FAERS Safety Report 7412413-4 (Version None)
Quarter: 2011Q2

REPORT INFORMATION
  Report Type: 
  Country: None (occurrence: None)
  Receive Date: 20110413
  Receipt Date: 20110330
  Transmission Date: 20111010
  Serious: Yes (Hospitalization, Disabling, Other)
  Sender: FDA-Public Use
  Company Number: PHHY2010US87895

PATIENT
  Sex: Male
  Weight: 77.4 kg

DRUGS (9)
  1. EXJADE [Suspect]
     Indication: NEOPLASM
     Dosage: 1500 MG, QD
     Route: 048
     Dates: start: 20101001, end: 20101101
  2. ACE INHIBITOR NOS [Concomitant]
  3. ASPIRIN [Concomitant]
     Indication: PROPHYLAXIS
     Dosage: UNK
     Route: 048
     Dates: start: 20040514
  4. RED BLOOD CELLS, LEUCOCYTE DEPLETED [Concomitant]
  5. EXJADE [Suspect]
     Indication: MYELODYSPLASTIC SYNDROME
     Dosage: 3 TABS DAILY
     Route: 048
     Dates: start: 20101020, end: 20101113
  6. ACETAMINOPHEN [Concomitant]
  7. ACETAMINOPHEN [Concomitant]
     Indication: PAIN
     Dosage: 325 MG, 2 TABS
     Route: 048
     Dates: start: 20091204
  8. LISINOPRIL [Concomitant]
     Indication: BLOOD PRESSURE
     Dosage: 25 MG, DAILY
     Route: 048
     Dates: start: 20071111
  9. NSAID'S [Concomitant]

REACTIONS (18)
  - HEPATIC ENZYME INCREASED [None]
  - BLOOD GLUCOSE INCREASED [None]
  - CONSTIPATION [None]
  - CHILLS [None]
  - DIARRHOEA [None]
  - DIZZINESS [None]
  - NAUSEA [None]
  - BLOOD PRESSURE SYSTOLIC INCREASED [None]
  - DYSPNOEA [None]
  - HEADACHE [None]
  - FATIGUE [None]
  - LIVER DISORDER [None]
  - MALAISE [None]
  - HAEMATINURIA [None]
  - PALPITATIONS [None]
  - FEELING ABNORMAL [None]
  - DECREASED APPETITE [None]
  - ASTHENIA [None]
